FAERS Safety Report 4665063-7 (Version None)
Quarter: 2005Q2

REPORT INFORMATION
  Report Type: 
  Country: None (occurrence: None)
  Receive Date: 20050517
  Receipt Date: 20050503
  Transmission Date: 20051028
  Serious: Yes (Other)
  Sender: FDA-Public Use
  Company Number: 200503767

PATIENT
  Age: 58 Year
  Sex: Female

DRUGS (1)
  1. LUMIGAN [Suspect]
     Indication: GLAUCOMA

REACTIONS (6)
  - CONJUNCTIVAL OEDEMA [None]
  - CORNEAL ULCER [None]
  - EYELID OEDEMA [None]
  - HYPERAEMIA [None]
  - KERATITIS [None]
  - PAIN [None]
